FAERS Safety Report 7121325-5 (Version None)
Quarter: 2010Q4

REPORT INFORMATION
  Report Type: 
  Country: None (occurrence: None)
  Receive Date: 20101119
  Receipt Date: 20101119
  Transmission Date: 20110411
  Serious: Yes (Other)
  Sender: FDA-Public Use
  Company Number: None

PATIENT
  Age: 42 Year
  Sex: Female

DRUGS (1)
  1. FENTANYL-100 [Suspect]
     Dosage: APPLY PATCH EVERY 2 DAYS AS NEEDED FOR PAIN

REACTIONS (1)
  - SOMNOLENCE [None]
